FAERS Safety Report 4351547-8 (Version None)
Quarter: 2004Q2

REPORT INFORMATION
  Report Type: 
  Country: None (occurrence: None)
  Receive Date: 20040503
  Receipt Date: 20030902
  Transmission Date: 20050107
  Serious: Yes (Hospitalization, Disabling)
  Sender: FDA-Public Use
  Company Number: US-MERCK-0309USA00395

PATIENT
  Age: 55 Year
  Sex: Male

DRUGS (5)
  1. CAPTOPRIL [Concomitant]
     Route: 048
  2. CIPRO [Suspect]
     Route: 065
     Dates: start: 20030801, end: 20030901
  3. LEVAQUIN [Suspect]
     Route: 065
  4. ZOCOR [Suspect]
     Route: 048
     Dates: start: 20020730
  5. ZOCOR [Suspect]
     Route: 048
     Dates: end: 20030901

REACTIONS (14)
  - BLOOD TRIGLYCERIDES INCREASED [None]
  - CALCINOSIS [None]
  - CONFUSIONAL STATE [None]
  - DIALYSIS [None]
  - DRUG INTERACTION [None]
  - FEELING ABNORMAL [None]
  - HYPERCALCAEMIA [None]
  - INTESTINAL FUNCTIONAL DISORDER [None]
  - LOW DENSITY LIPOPROTEIN INCREASED [None]
  - MEDICATION ERROR [None]
  - MITOCHONDRIAL MYOPATHY [None]
  - MUSCLE DISORDER [None]
  - RENAL FAILURE ACUTE [None]
  - RHABDOMYOLYSIS [None]
